FAERS Safety Report 13925888 (Version 6)
Quarter: 2018Q1

REPORT INFORMATION
  Report Type: Report from Study
  Country: US (occurrence: US)
  Receive Date: 20170831
  Receipt Date: 20180329
  Transmission Date: 20180508
  Serious: Yes (Hospitalization)
  Sender: FDA-Public Use
  Company Number: US-JNJFOC-20170122534

PATIENT
  Age: 62 Year
  Sex: Female

DRUGS (4)
  1. IMBRUVICA [Suspect]
     Active Substance: IBRUTINIB
     Indication: WALDENSTROM^S MACROGLOBULINAEMIA
     Route: 048
     Dates: start: 20161216, end: 20180131
  2. IMBRUVICA [Suspect]
     Active Substance: IBRUTINIB
     Indication: WALDENSTROM^S MACROGLOBULINAEMIA
     Dosage: 420 MG, QD
     Route: 048
     Dates: start: 20161214
  3. IMBRUVICA [Suspect]
     Active Substance: IBRUTINIB
     Indication: WALDENSTROM^S MACROGLOBULINAEMIA
     Route: 048
     Dates: start: 20180207, end: 20180316
  4. IMBRUVICA [Suspect]
     Active Substance: IBRUTINIB
     Indication: WALDENSTROM^S MACROGLOBULINAEMIA
     Route: 048
     Dates: start: 20180317

REACTIONS (24)
  - Wound infection [Recovered/Resolved]
  - Device occlusion [Unknown]
  - Headache [Not Recovered/Not Resolved]
  - Laceration [Recovered/Resolved]
  - Pain [Recovering/Resolving]
  - Blood count abnormal [Unknown]
  - Drug dose omission [Unknown]
  - Pleural effusion [Recovered/Resolved]
  - Blood immunoglobulin M decreased [Recovering/Resolving]
  - Hangnail [Unknown]
  - Joint swelling [Not Recovered/Not Resolved]
  - Neuropathy peripheral [Not Recovered/Not Resolved]
  - Blood immunoglobulin A decreased [Not Recovered/Not Resolved]
  - Impaired healing [Unknown]
  - Hair disorder [Recovering/Resolving]
  - Contusion [Unknown]
  - Nausea [Recovering/Resolving]
  - Oedema [Recovering/Resolving]
  - Peripheral swelling [Not Recovered/Not Resolved]
  - Lung neoplasm malignant [Recovered/Resolved]
  - Influenza [Recovering/Resolving]
  - Pneumonia [Recovering/Resolving]
  - Onychoclasis [Not Recovered/Not Resolved]
  - Oral herpes [Not Recovered/Not Resolved]

NARRATIVE: CASE EVENT DATE: 201612
